FAERS Safety Report 24588465 (Version 3)
Quarter: 2024Q4

REPORT INFORMATION
  Report Type: Spontaneous
  Country: JP (occurrence: JP)
  Receive Date: 20241107
  Receipt Date: 20241126
  Transmission Date: 20250114
  Serious: Yes (Hospitalization, Other)
  Sender: MERCK
  Company Number: JP-MSD-M2024-45439

PATIENT
  Age: 88 Year
  Sex: Female

DRUGS (1)
  1. KEYTRUDA [Suspect]
     Active Substance: PEMBROLIZUMAB
     Indication: Tongue cancer recurrent
     Dosage: 200 MILLIGRAM, Q3W
     Route: 041
     Dates: start: 20240304, end: 20241022

REACTIONS (9)
  - Atrial fibrillation [Unknown]
  - Jaundice cholestatic [Recovering/Resolving]
  - Haemobilia [Recovering/Resolving]
  - Biliary dilatation [Unknown]
  - Gallbladder enlargement [Unknown]
  - Bile duct stenosis [Unknown]
  - Cholangitis sclerosing [Recovering/Resolving]
  - Faeces discoloured [Recovering/Resolving]
  - Liver disorder [Recovering/Resolving]

NARRATIVE: CASE EVENT DATE: 20240101
